FAERS Safety Report 4940656-8 (Version None)
Quarter: 2006Q1

REPORT INFORMATION
  Report Type: 
  Country: None (occurrence: None)
  Receive Date: 20060207
  Receipt Date: 20050923
  Transmission Date: 20060701
  Serious: Yes (Hospitalization, Other)
  Sender: FDA-Public Use
  Company Number: C2005-200-638

PATIENT
  Age: 67 Year
  Sex: Male
  Weight: 99 kg

DRUGS (9)
  1. CEFAZOLIN [Suspect]
     Indication: PREOPERATIVE CARE
     Dosage: 1G ONCE IV PUSH
     Dates: start: 20050815
  2. CEFAZOLIN [Suspect]
     Indication: PROPHYLAXIS
     Dosage: 1G ONCE IV PUSH
     Dates: start: 20050815
  3. TOPROL-XL [Concomitant]
  4. ZOCOR [Concomitant]
  5. ZETIA [Concomitant]
  6. ONE ENTERIC COATED ASPIRIN [Concomitant]
  7. MULTI-VITAMIN [Concomitant]
  8. VITAMIN E [Concomitant]
  9. ASCORBIC ACID [Concomitant]

REACTIONS (1)
  - ANAPHYLACTOID REACTION [None]
